FAERS Safety Report 26069870 (Version 1)
Quarter: 2025Q4

REPORT INFORMATION
  Report Type: Spontaneous
  Country: US (occurrence: US)
  Receive Date: 20251120
  Receipt Date: 20251120
  Transmission Date: 20260118
  Serious: No
  Sender: CATALYST PHARMA
  Company Number: US-CATALYST PHARMACEUTICALS-US-CATA-25-01315

PATIENT
  Age: 13 Year
  Sex: Male
  Weight: 75.283 kg

DRUGS (13)
  1. AGAMREE [Suspect]
     Active Substance: VAMOROLONE
     Indication: Duchenne muscular dystrophy
     Dosage: 7.5 ML DAILY
     Route: 048
     Dates: start: 20240625, end: 2024
  2. AGAMREE [Suspect]
     Active Substance: VAMOROLONE
     Dosage: 6.5 ML
     Route: 048
     Dates: start: 20240816, end: 2024
  3. AGAMREE [Suspect]
     Active Substance: VAMOROLONE
     Dosage: 5 ML DAILY
     Route: 048
     Dates: start: 20240905
  4. CARVEDILOL [Concomitant]
     Active Substance: CARVEDILOL
     Indication: Cardiovascular event prophylaxis
     Dosage: 3.125 MG TWICE A DAY
     Route: 065
  5. CLOTRIMAZOLE [Concomitant]
     Active Substance: CLOTRIMAZOLE
     Indication: Fungal infection
     Dosage: 1% APPLIED AS NEEDED
     Route: 065
  6. ENTRESTO [Concomitant]
     Active Substance: SACUBITRIL\VALSARTAN
     Indication: Cardiovascular event prophylaxis
     Dosage: 24-26 MG TWICE A DAY
     Route: 065
  7. EPLERENONE [Concomitant]
     Active Substance: EPLERENONE
     Indication: Cardiovascular event prophylaxis
     Dosage: 25 MG DAILY
     Route: 065
  8. FISH OIL [Concomitant]
     Active Substance: FISH OIL
     Indication: Cardiovascular event prophylaxis
     Dosage: 1000 MG DAILY
     Route: 065
  9. LIDOCAINE\PRILOCAINE [Concomitant]
     Active Substance: LIDOCAINE\PRILOCAINE
     Indication: Product used for unknown indication
     Dosage: APPLIED PRIOR TO INFUSION
     Route: 061
  10. MIRALAX [Concomitant]
     Active Substance: POLYETHYLENE GLYCOL 3350
     Indication: Constipation
     Dosage: 17 G AS NEEDED
     Route: 065
  11. VITAMINS [Concomitant]
     Active Substance: VITAMINS
     Indication: Hypovitaminosis
     Dosage: TWO TABLETS DAILY
     Route: 065
  12. VITAMIN D [Concomitant]
     Active Substance: VITAMIN D NOS
     Indication: Hypovitaminosis
     Dosage: 2000 UNITS DAILY
     Route: 065
  13. VYONDYS 53 [Concomitant]
     Active Substance: GOLODIRSEN
     Indication: Duchenne muscular dystrophy
     Dosage: 2 ML WEEKLY
     Route: 042

REACTIONS (1)
  - Scoliosis [Not Recovered/Not Resolved]

NARRATIVE: CASE EVENT DATE: 20250828
